FAERS Safety Report 6315297-0 (Version None)
Quarter: 2009Q3

REPORT INFORMATION
  Report Type: 
  Country: None (occurrence: None)
  Receive Date: 20090819
  Receipt Date: 20090811
  Transmission Date: 20100115
  Serious: Yes (Hospitalization, Other)
  Sender: FDA-Public Use
  Company Number: PHHY2009DE34095

PATIENT
  Age: 68 Year
  Sex: Male
  Weight: 103 kg

DRUGS (17)
  1. SANDIMMUNE [Suspect]
     Indication: RENAL TRANSPLANT
     Dosage: 125 MG, BID
     Route: 048
     Dates: start: 20081101
  2. SANDIMMUNE [Suspect]
     Dosage: 125-0-100 MG
     Route: 048
     Dates: start: 20090703
  3. SANDIMMUNE [Suspect]
     Dosage: 100-0-100 MG
     Route: 048
     Dates: start: 20090704
  4. SANDIMMUNE [Suspect]
     Dosage: 100-0-75
     Route: 048
     Dates: start: 20090705
  5. SANDIMMUNE [Suspect]
     Dosage: 75 MG, BID
     Route: 048
     Dates: start: 20090720
  6. ARAVA [Suspect]
     Indication: BK VIRUS INFECTION
     Dosage: 20 MG, BID
     Route: 048
     Dates: start: 20090601
  7. DECORTIN [Concomitant]
     Indication: RENAL TRANSPLANT
     Dosage: 5 MG, QD
     Route: 048
     Dates: start: 20090301
  8. PREDNISOLONE [Concomitant]
     Dosage: 100 MG
     Route: 042
     Dates: start: 20090711
  9. ASPIRIN [Concomitant]
     Indication: ATRIAL FIBRILLATION
     Dosage: 300 MG, QD
     Route: 048
     Dates: start: 20000101
  10. CARMEN [Concomitant]
     Indication: HYPERTENSION
     Dosage: 10 MG, BID
     Route: 048
     Dates: start: 20070101
  11. COTRIM [Concomitant]
     Indication: PROPHYLAXIS
     Dosage: 1 DF, BID
     Route: 048
     Dates: start: 20081101
  12. METOHEXAL [Concomitant]
     Indication: HYPERTENSION
     Dosage: 60 MG, BID
     Route: 048
     Dates: start: 20070101
  13. MIMPARA [Concomitant]
     Indication: RENAL TRANSPLANT
     Dosage: 60 MG, QD
     Route: 048
     Dates: start: 20000101
  14. MOXONIDINE [Concomitant]
     Indication: HYPERTENSION
     Dosage: 0.3 MG, BID
     Route: 048
     Dates: start: 20070101
  15. PANTOZOL [Concomitant]
     Indication: PROPHYLAXIS AGAINST GASTROINTESTINAL ULCER
     Dosage: 40 MG, BID
     Route: 048
     Dates: start: 20070101
  16. TAMSULOSIN [Concomitant]
     Indication: BENIGN PROSTATIC HYPERPLASIA
     Dosage: 0.4 MG, QD
     Route: 048
     Dates: start: 20080801
  17. TOREM [Concomitant]
     Indication: HYPERTENSION
     Dosage: 10 MG, BID
     Route: 048
     Dates: start: 20070101

REACTIONS (7)
  - BK VIRUS INFECTION [None]
  - FEELING ABNORMAL [None]
  - INTERSTITIAL LUNG DISEASE [None]
  - LUNG INFILTRATION [None]
  - MICTURITION DISORDER [None]
  - RENAL IMPAIRMENT [None]
  - RHINORRHOEA [None]
